FAERS Safety Report 8872223 (Version 2)
Quarter: 2012Q4

REPORT INFORMATION
  Report Type: 
  Country: US (occurrence: US)
  Receive Date: 20121030
  Receipt Date: 20121225
  Transmission Date: 20130627
  Serious: Yes (Other)
  Sender: FDA-Public Use
  Company Number: US-JNJFOC-20121009667

PATIENT
  Sex: Female
  Weight: 77.11 kg

DRUGS (7)
  1. INVEGA SUSTENNA [Suspect]
     Indication: PRODUCT USED FOR UNKNOWN INDICATION
     Route: 030
     Dates: start: 201008
  2. INVEGA SUSTENNA [Suspect]
     Indication: PRODUCT USED FOR UNKNOWN INDICATION
     Route: 030
     Dates: start: 2012
  3. AN UNKNOWN MEDICATION [Concomitant]
     Indication: THYROID DISORDER
     Route: 048
  4. ARMOUR THYROID [Concomitant]
     Indication: THYROID DISORDER
     Route: 065
  5. PLAQUENIL [Concomitant]
     Indication: SJOGREN^S SYNDROME
     Route: 065
  6. CELEBREX [Concomitant]
     Indication: AUTOIMMUNE DISORDER
     Route: 065
  7. TOPROL  XL [Concomitant]
     Indication: HYPERTENSION
     Route: 065

REACTIONS (11)
  - Fungal infection [Not Recovered/Not Resolved]
  - Malaise [Not Recovered/Not Resolved]
  - Poisoning [Not Recovered/Not Resolved]
  - Skin disorder [Not Recovered/Not Resolved]
  - Spinal pain [Not Recovered/Not Resolved]
  - Product contamination microbial [Unknown]
  - Cerebrovascular accident [Recovered/Resolved]
  - Hypersensitivity [Not Recovered/Not Resolved]
  - Headache [Recovering/Resolving]
  - Arthralgia [Not Recovered/Not Resolved]
  - Hypoaesthesia [Recovered/Resolved]
